FAERS Safety Report 4443729-1 (Version None)
Quarter: 2004Q3

REPORT INFORMATION
  Report Type: 
  Country: None (occurrence: None)
  Receive Date: 20040729
  Receipt Date: 20040414
  Transmission Date: 20050211
  Serious: Yes (Death)
  Sender: FDA-Public Use
  Company Number: USA-2004-0014564

PATIENT
  Age: 56 Year
  Sex: Female
  Weight: 105.2 kg

DRUGS (12)
  1. MORPHINE SULFATE [Suspect]
  2. FLUOXETINE [Suspect]
  3. NEURONTIN [Suspect]
  4. TRAZODONE [Suspect]
  5. CANNABIS [Suspect]
  6. ALPRAZOLAM [Suspect]
  7. TEMAZEPAM` [Suspect]
  8. OXAZEPAM [Suspect]
  9. METOPROLOL [Suspect]
  10. DEXTROMETHORPHAN HYDROBROMIDE [Suspect]
  11. ACETAMINOPHEN [Suspect]
  12. PROPOXYPHENE HCL [Suspect]

REACTIONS (1)
  - OVERDOSE [None]
